FAERS Safety Report 25364341 (Version 1)
Quarter: 2025Q2

REPORT INFORMATION
  Report Type: Spontaneous
  Country: US (occurrence: None)
  Receive Date: 20250523
  Receipt Date: 20250523
  Transmission Date: 20250716
  Serious: Yes (Hospitalization)
  Sender: FDA-CTU
  Company Number: None

PATIENT
  Sex: Female
  Weight: 94.5 kg

DRUGS (3)
  1. SILDENAFIL CITRATE [Suspect]
     Active Substance: SILDENAFIL CITRATE
     Indication: Pulmonary arterial hypertension
     Dosage: 60 MG 3 TIMES A DAY ORAL ?
     Route: 048
     Dates: start: 20170126
  2. WINREVAIR [Suspect]
     Active Substance: SOTATERCEPT-CSRK
  3. TREPROSTINIL [Suspect]
     Active Substance: TREPROSTINIL

REACTIONS (4)
  - Vascular device infection [None]
  - Pneumonia [None]
  - Platelet count abnormal [None]
  - Therapy interrupted [None]
